FAERS Safety Report 8211821-1 (Version None)
Quarter: 2012Q1

REPORT INFORMATION
  Report Type: 
  Country: None (occurrence: None)
  Receive Date: 20120228
  Receipt Date: 20111213
  Transmission Date: 20120608
  Serious: Yes (Hospitalization)
  Sender: FDA-Public Use
  Company Number: RB-35484-2011

PATIENT
  Sex: Male

DRUGS (2)
  1. SUBUTEX [Suspect]
     Indication: DRUG DEPENDENCE
     Dosage: 4 MG, 4 MG,  TRANSPLACENTAL
     Route: 064
     Dates: end: 20111130
  2. MULTI-VITAMINS [Concomitant]

REACTIONS (1)
  - FOETAL EXPOSURE DURING PREGNANCY [None]
